FAERS Safety Report 6174154-3 (Version None)
Quarter: 2009Q2

REPORT INFORMATION
  Report Type: 
  Country: None (occurrence: None)
  Receive Date: 20090430
  Receipt Date: 20080416
  Transmission Date: 20091009
  Serious: No
  Sender: FDA-Public Use
  Company Number: US-ASTRAZENECA-2008UW07679

PATIENT
  Age: 68 Year
  Sex: Female
  Weight: 77.6 kg

DRUGS (6)
  1. NEXIUM [Suspect]
     Indication: DYSPHAGIA
     Route: 048
     Dates: start: 20080101
  2. NEXIUM [Suspect]
     Indication: REFLUX OESOPHAGITIS
     Route: 048
     Dates: start: 20080101
  3. ARICEPT [Concomitant]
  4. ZETIA [Concomitant]
  5. HALOPERIDOL [Concomitant]
  6. DETROL LA [Concomitant]

REACTIONS (2)
  - CONFUSIONAL STATE [None]
  - DIARRHOEA [None]
